FAERS Safety Report 4379651-9 (Version None)
Quarter: 2004Q2

REPORT INFORMATION
  Report Type: 
  Country: None (occurrence: None)
  Receive Date: 20040614
  Receipt Date: 20040604
  Transmission Date: 20050107
  Serious: No
  Sender: FDA-Public Use
  Company Number: 2003SE03244

PATIENT
  Age: 49 Year
  Sex: Male

DRUGS (8)
  1. METOPROLOL SUCCINATE [Suspect]
     Dosage: 100 MG QD PO
     Route: 048
     Dates: start: 20000601
  2. ZANTAC [Concomitant]
  3. NORVASC [Concomitant]
  4. CIPROXIN [Concomitant]
  5. CELLCEPT [Concomitant]
  6. FUROSEMIDE [Concomitant]
  7. PREDNISOLONE [Concomitant]
  8. PROGRAF [Concomitant]

REACTIONS (1)
  - RETINAL DETACHMENT [None]
